FAERS Safety Report 10451112 (Version 2)
Quarter: 2014Q3

REPORT INFORMATION
  Report Type: Spontaneous
  Country: US (occurrence: US)
  Receive Date: 20140912
  Receipt Date: 20140912
  Transmission Date: 20150326
  Serious: Yes (Other)
  Sender: FDA-Public Use
  Company Number: ALCN2012US005177

PATIENT
  Age: 66 Year
  Sex: Female

DRUGS (4)
  1. TOBRAMYCIN [Suspect]
     Active Substance: TOBRAMYCIN
     Dosage: 1 DF, QID
  2. 50 MG/ML OF FORTIFIED CEFTAZIDIME [Suspect]
     Active Substance: CEFTAZIDIME
     Dosage: 1 DF, QH
  3. PREDNISOLONE ACETATE. [Suspect]
     Active Substance: PREDNISOLONE ACETATE
     Dosage: 1 DF, Q2H
     Route: 047
  4. TOBRAMYCIN [Suspect]
     Active Substance: TOBRAMYCIN
     Dosage: 1 DF, QH

REACTIONS (6)
  - Corneal epithelium defect [Recovered/Resolved]
  - Corneal thinning [Recovering/Resolving]
  - Keratitis bacterial [Recovering/Resolving]
  - Iritis [Unknown]
  - Corneal oedema [Recovering/Resolving]
  - Corneal infiltrates [Recovered/Resolved]
